FAERS Safety Report 13220683 (Version 3)
Quarter: 2017Q1

REPORT INFORMATION
  Report Type: Report from Study
  Country: US (occurrence: US)
  Receive Date: 20170211
  Receipt Date: 20170322
  Transmission Date: 20170428
  Serious: Yes (Other)
  Sender: FDA-Public Use
  Company Number: PHEH2017US004396

PATIENT
  Sex: Female
  Weight: 80.5 kg

DRUGS (2)
  1. AFINITOR [Suspect]
     Active Substance: EVEROLIMUS
     Indication: UTERINE NEOPLASM
     Dosage: 10 MG, QD
     Route: 048
     Dates: start: 20150202
  2. AFINITOR [Suspect]
     Active Substance: EVEROLIMUS
     Dosage: 10 MG, QD
     Route: 048
     Dates: start: 201605

REACTIONS (5)
  - Endometrial cancer [Unknown]
  - Deep vein thrombosis [Unknown]
  - Metastases to lung [Unknown]
  - Abdominal hernia [Unknown]
  - Product use issue [Unknown]

NARRATIVE: CASE EVENT DATE: 2015
